FAERS Safety Report 6358295-3 (Version None)
Quarter: 2009Q3

REPORT INFORMATION
  Report Type: 
  Country: None (occurrence: None)
  Receive Date: 20090916
  Receipt Date: 20090908
  Transmission Date: 20100115
  Serious: Yes (Hospitalization)
  Sender: FDA-Public Use
  Company Number: PHHY2009MX38391

PATIENT
  Sex: Male

DRUGS (2)
  1. DIOVAN [Suspect]
     Indication: HYPERTENSION
     Dosage: 1 DF (320 MG) DAILY
     Dates: start: 20070801
  2. ASPIRIN [Concomitant]
     Indication: PROPHYLAXIS
     Dosage: 1 DF (320 MG) DAILY
     Dates: start: 20070801

REACTIONS (1)
  - SMALL INTESTINAL ANASTOMOSIS [None]
